FAERS Safety Report 5381642-6 (Version None)
Quarter: 2007Q3

REPORT INFORMATION
  Report Type: 
  Country: None (occurrence: None)
  Receive Date: 20070709
  Receipt Date: 20070625
  Transmission Date: 20080115
  Serious: Yes (Other)
  Sender: FDA-Public Use
  Company Number: PHHO2007US11083

PATIENT
  Age: 40 Year
  Sex: Male

DRUGS (3)
  1. LIORESAL [Suspect]
     Indication: MUSCLE SPASTICITY
  2. OXYCODONE HCL [Suspect]
  3. BACLOFEN [Suspect]
     Route: 048

REACTIONS (1)
  - DRUG TOXICITY [None]
